FAERS Safety Report 8997663 (Version 2)
Quarter: 2013Q2

REPORT INFORMATION
  Report Type: Report from Study
  Country: JP (occurrence: JP)
  Receive Date: 20130104
  Receipt Date: 20130529
  Transmission Date: 20140414
  Serious: Yes (Other)
  Sender: FDA-Public Use
  Company Number: JP-VERTEX PHARMACEUTICALS INC.-2012-025414

PATIENT
  Age: 59 Year
  Sex: Male

DRUGS (14)
  1. VX-950 (TELAPREVIR) [Suspect]
     Indication: CHRONIC HEPATITIS C
     Dosage: 1500 MG, QD
     Route: 048
     Dates: start: 20120912, end: 20121206
  2. RIBAVIRIN [Suspect]
     Indication: CHRONIC HEPATITIS C
     Dosage: 1000 MG, QD
     Route: 048
     Dates: start: 20120912, end: 20121003
  3. RIBAVIRIN [Suspect]
     Dosage: 600 MG, QD
     Route: 048
     Dates: start: 20121004, end: 20121010
  4. RIBAVIRIN [Suspect]
     Dosage: 400 MG, QD
     Route: 048
     Dates: start: 20121011, end: 20130130
  5. RIBAVIRIN [Suspect]
     Dosage: 600 MG, UNK
     Route: 048
     Dates: start: 20130131, end: 20130221
  6. PEGINTERFERON ALFA-2B (GENETICAL RECOMBINATION) [Concomitant]
     Indication: HEPATITIS C
     Dosage: 1.5 ?G/KG, QW
     Route: 058
     Dates: start: 20120912, end: 20130221
  7. LIVALO [Concomitant]
     Dosage: 2 MG, QD
     Route: 048
  8. EPADEL [Concomitant]
     Dosage: 1800 MG, QD
     Route: 048
  9. FEROTYM [Concomitant]
     Dosage: 100 MG, QD
     Route: 048
  10. CLARITIN REDITABS [Concomitant]
     Dosage: 10 MG, QD
     Route: 048
  11. LANSOPRAZOLE [Concomitant]
     Dosage: 15 MG, QD
     Route: 048
  12. MUKAMURO [Concomitant]
     Dosage: 1 UNK, UNK
     Route: 048
  13. AMARYL [Concomitant]
     Dosage: 3 MG, QD
     Route: 048
  14. GLACTIV [Concomitant]
     Dosage: 50 MG, QD
     Route: 048

REACTIONS (4)
  - Rash [Recovered/Resolved]
  - Anaemia [Not Recovered/Not Resolved]
  - Anaemia [Not Recovered/Not Resolved]
  - Anaemia [Not Recovered/Not Resolved]
